FAERS Safety Report 9668429 (Version 2)
Quarter: 2013Q4

REPORT INFORMATION
  Report Type: Spontaneous
  Country: IT (occurrence: IT)
  Receive Date: 20131105
  Receipt Date: 20131107
  Transmission Date: 20140711
  Serious: Yes (Hospitalization)
  Sender: FDA-Public Use
  Company Number: IT-PFIZER INC-2013312179

PATIENT
  Age: 65 Year
  Sex: Male
  Weight: 90 kg

DRUGS (2)
  1. CISPLATIN [Suspect]
     Indication: ADENOSQUAMOUS CELL LUNG CANCER STAGE III
     Dosage: 80 MG/M2, CYCLIC
     Route: 042
     Dates: start: 20131007, end: 20131007
  2. NAVELBINE [Suspect]
     Indication: ADENOSQUAMOUS CELL LUNG CANCER STAGE III
     Dosage: 25 MG/M2, CYCLIC
     Route: 042
     Dates: start: 20131007, end: 20131007

REACTIONS (3)
  - Abdominal pain [Recovered/Resolved]
  - Neutropenia [Recovered/Resolved]
  - Stomatitis [Recovered/Resolved]
